FAERS Safety Report 13674256 (Version 1)
Quarter: 2017Q2

REPORT INFORMATION
  Report Type: Report from Study
  Country: HU (occurrence: HU)
  Receive Date: 20170621
  Receipt Date: 20170621
  Transmission Date: 20170830
  Serious: Yes (Hospitalization, Other)
  Sender: FDA-Public Use
  Company Number: HU-JNJFOC-20170424095

PATIENT
  Age: 40 Year
  Sex: Female

DRUGS (5)
  1. RIPEDON [Concomitant]
     Active Substance: RISPERIDONE
     Indication: PRODUCT USED FOR UNKNOWN INDICATION
     Route: 065
  2. LANTUS [Concomitant]
     Active Substance: INSULIN GLARGINE
     Indication: TYPE 1 DIABETES MELLITUS
     Route: 065
  3. XEPLION [Suspect]
     Active Substance: PALIPERIDONE PALMITATE
     Indication: SCHIZOPHRENIA
     Dosage: MOST RECENT DOSE ON 29-MAR-2017
     Route: 030
     Dates: start: 20160818
  4. NOVORAPID [Concomitant]
     Active Substance: INSULIN ASPART
     Indication: TYPE 1 DIABETES MELLITUS
     Dosage: 8-8-8
     Route: 065
  5. RIVOTRIL [Concomitant]
     Active Substance: CLONAZEPAM
     Indication: PRODUCT USED FOR UNKNOWN INDICATION
     Dosage: 0.5- 0.5 -1 MG
     Route: 065

REACTIONS (9)
  - Pneumonia [Unknown]
  - Pancreatitis [Unknown]
  - Groin abscess [Unknown]
  - Skin ulcer [Unknown]
  - Abscess limb [Recovering/Resolving]
  - Subcutaneous abscess [Unknown]
  - Genital abscess [Recovering/Resolving]
  - Carbuncle [Unknown]
  - Diabetic ketoacidosis [Unknown]

NARRATIVE: CASE EVENT DATE: 2017
